FAERS Safety Report 9455376 (Version 2)
Quarter: 2013Q3

REPORT INFORMATION
  Report Type: Spontaneous
  Country: CH (occurrence: None)
  Receive Date: 20130808
  Receipt Date: 20130821
  Transmission Date: 20140515
  Serious: Yes (Other)
  Sender: FDA-Public Use
  Company Number: 20130422

PATIENT
  Age: 48 Year
  Sex: Female

DRUGS (1)
  1. FERINJECT [Suspect]
     Indication: IRON DEFICIENCY
     Dates: start: 20130620, end: 20130620

REACTIONS (5)
  - Tachycardia [None]
  - Chest discomfort [None]
  - Cold sweat [None]
  - Pallor [None]
  - Hypersensitivity [None]
